FAERS Safety Report 9156862 (Version 2)
Quarter: 2013Q2

REPORT INFORMATION
  Report Type: Spontaneous
  Country: US (occurrence: None)
  Receive Date: 20130212
  Receipt Date: 20130502
  Transmission Date: 20140414
  Serious: Yes (Hospitalization, Other)
  Sender: FDA-Public Use
  Company Number: 2012-003884

PATIENT
  Age: 81 Year
  Sex: Female

DRUGS (31)
  1. ACTONEL (RISEDRONATE SODIUM) TABLET, 35MG [Suspect]
     Indication: OSTEOPOROSIS
     Dosage: 35MG ONCE WEEKLY, ORAL
     Route: 048
     Dates: start: 20040617, end: 200710
  2. ACTONEL (RISEDRONATE SODIUM) TABLET, 35MG [Suspect]
     Indication: OSTEOPOROSIS PROPHYLAXIS
     Dosage: 35MG ONCE WEEKLY, ORAL
     Route: 048
     Dates: start: 20040617, end: 200710
  3. ACTONEL (RISEDRONATE SODIUM) TABLET, 35MG [Suspect]
     Dosage: 35MG ONCE WEEKLY, ORAL
     Route: 048
     Dates: start: 20040617, end: 200710
  4. FOSAMAX (ALENDRONATE SODIUM) [Suspect]
     Route: 048
     Dates: end: 20110119
  5. FOSAMAX (ALENDRONATE SODIUM) [Suspect]
     Route: 048
     Dates: end: 20110119
  6. FOSAMAX (ALENDRONATE SODIUM) [Suspect]
     Route: 048
     Dates: end: 20110119
  7. FOSAMAX [Suspect]
     Dosage: ALENDRONATE 70 MG WEEKLY, COLECALCIFEROL DAILY
     Dates: start: 20080317
  8. FOSAMAX [Suspect]
     Dosage: ALENDRONATE 70 MG WEEKLY, COLECALCIFEROL DAILY
     Dates: start: 20080317
  9. FOSAMAX [Suspect]
     Dosage: ALENDRONATE 70 MG WEEKLY, COLECALCIFEROL DAILY
     Dates: start: 20080317
  10. ALENDRONATE (ALENDRONATE SODIUM) [Suspect]
     Dosage: 70 MG ONCE WEEKLY, ORAL
     Route: 048
     Dates: end: 20110119
  11. ALENDRONATE (ALENDRONATE SODIUM) [Suspect]
     Dosage: 70 MG ONCE WEEKLY, ORAL
     Route: 048
     Dates: end: 20110119
  12. ALENDRONATE (ALENDRONATE SODIUM) [Suspect]
     Dosage: 70 MG ONCE WEEKLY, ORAL
     Route: 048
     Dates: end: 20110119
  13. BABY ASPIRIN (ACETYLSALICYLIC ACID) [Concomitant]
  14. METHYLDOPA (METHYLDOPA) [Concomitant]
  15. HYDROCHLOROTHIAZIDE (HYDROCHLOROTHIAZIDE) [Concomitant]
  16. METOPROLOL (METOPROLOL) [Concomitant]
  17. LOTREL (AMLODIPINE BESILATE, BENAZEPRIL HYDROCHLORIDE) [Concomitant]
  18. LISINOPRIL (LISINOPRIL) [Concomitant]
  19. SIMVASTATIN (SIMVASTATIN) [Concomitant]
  20. LIPITOR (ATORVASTATIN CALCIUM) [Concomitant]
  21. ALLEGRA [Concomitant]
  22. OXYTROL (OXYBUTYNIN) [Concomitant]
  23. MACRODANTIN [Concomitant]
  24. PYRIDIUM (PHENAZOPYRIDINE HYDROCHLORIDE) [Concomitant]
  25. PREMARIN (ESTROGENS CONJUGATED) [Concomitant]
  26. OMEGA 3/01334101/(FISH OIL) [Concomitant]
  27. MULTIVITAMIN/00097801/ASCORBIC ACID, CALCIUM PANTOTHENATE, ERGOCALCIFEROL, NICOTINAMIDE, PYRIDOXINE HYDROCHLORIDE, RETINOL, RIBOFLAVIN, THIAMINE HYDROCHLORIDE) [Concomitant]
  28. CALCIUM (CALCIUM) [Concomitant]
  29. VITAMIN D/00318501/COLECALCIFEROL) [Concomitant]
  30. EVISTA (RALOXIFENE HYDROCHLORIDE) [Concomitant]
  31. SYNTHROID (LEVOTHYROXINE SODIUM) [Concomitant]

REACTIONS (10)
  - Femur fracture [None]
  - Osteogenesis imperfecta [None]
  - Pain [None]
  - Low turnover osteopathy [None]
  - Osteoarthritis [None]
  - Femur fracture [None]
  - Scoliosis [None]
  - Stress fracture [None]
  - Fall [None]
  - Pathological fracture [None]
